FAERS Safety Report 7714697-1 (Version None)
Quarter: 2011Q3

REPORT INFORMATION
  Report Type: 
  Country: None (occurrence: None)
  Receive Date: 20110822
  Receipt Date: 20110812
  Transmission Date: 20111222
  Serious: Yes (Hospitalization, Other)
  Sender: FDA-Public Use
  Company Number: 1000022847

PATIENT
  Age: 72 Year
  Sex: Male

DRUGS (6)
  1. MICARDIS [Concomitant]
  2. JANUMET(SITAGLIPTIN, METFORMIN) [Concomitant]
  3. CRESTOR [Concomitant]
  4. LEXAPRO [Suspect]
     Indication: ANXIETY
     Dosage: 10 MG (10 MG, 1 IN 1 D), ORAL   5 MG (5 MG, 1 IN 1 D), ORAL
     Route: 048
     Dates: start: 20090101, end: 20110701
  5. NADOLOL [Concomitant]
  6. ASPIRIN [Concomitant]

REACTIONS (4)
  - VENTRICULAR EXTRASYSTOLES [None]
  - VENTRICULAR ARRHYTHMIA [None]
  - VENTRICULAR TACHYCARDIA [None]
  - CORONARY ARTERY DISEASE [None]
